FAERS Safety Report 7256899-7 (Version None)
Quarter: 2011Q1

REPORT INFORMATION
  Report Type: 
  Country: None (occurrence: None)
  Receive Date: 20110129
  Receipt Date: 20100722
  Transmission Date: 20110831
  Serious: No
  Sender: FDA-Public Use
  Company Number: US-ABBOTT-10P-163-0659496-00

PATIENT
  Age: 73 Year
  Sex: Male

DRUGS (8)
  1. METOPROLOL [Concomitant]
     Indication: CARDIAC DISORDER
  2. AMLODIPINE [Concomitant]
     Indication: CARDIAC DISORDER
  3. SIMVASTATIN [Concomitant]
     Indication: BLOOD CHOLESTEROL
  4. LEFLUNOMIDE [Concomitant]
     Indication: RHEUMATOID ARTHRITIS
  5. QUINAPRIL [Concomitant]
     Indication: CARDIAC DISORDER
  6. GLYBURIDE [Concomitant]
     Indication: DIABETES MELLITUS
     Dosage: 5MG, 1.5 PILLS DAILY
  7. HUMIRA [Suspect]
     Indication: RHEUMATOID ARTHRITIS
     Dates: start: 20060101
  8. METOFORMIN [Concomitant]
     Indication: DIABETES MELLITUS
     Dosage: 1000MG, 1.5 PILLS DAILY

REACTIONS (3)
  - PAIN [None]
  - INJECTION SITE PAIN [None]
  - INJECTION SITE HAEMATOMA [None]
